FAERS Safety Report 8673525 (Version 2)
Quarter: 2012Q4

REPORT INFORMATION
  Report Type: 
  Country: US (occurrence: US)
  Receive Date: 20120719
  Receipt Date: 20121019
  Transmission Date: 20130627
  Serious: Yes (Hospitalization)
  Sender: FDA-Public Use
  Company Number: US-BRISTOL-MYERS SQUIBB COMPANY-16538720

PATIENT
  Age: 89 Year
  Sex: Female

DRUGS (8)
  1. YERVOY [Suspect]
     Indication: METASTATIC MALIGNANT MELANOMA
     Dosage: 1df=200mg/40ml(5mg/ml)
176mg
also on 09Feb2012
     Route: 042
     Dates: start: 20120119
  2. NAMENDA [Concomitant]
  3. GLUCOPHAGE [Concomitant]
  4. ARICEPT [Concomitant]
  5. PREDNISONE [Concomitant]
  6. LOMOTIL [Concomitant]
     Dosage: 1df=2 tabs QID
  7. MULTIVITAMIN [Concomitant]
  8. VITAMIN D [Concomitant]

REACTIONS (1)
  - Colitis [Unknown]
